FAERS Safety Report 10904676 (Version 1)
Quarter: 2015Q1

REPORT INFORMATION
  Report Type: Spontaneous
  Country: GB (occurrence: None)
  Receive Date: 20150306
  Receipt Date: 20150306
  Transmission Date: 20150721
  Serious: Yes (Hospitalization, Other)
  Sender: FDA-Public Use
  Company Number: 2015GR_BP001298

PATIENT
  Age: 72 Year
  Sex: Male

DRUGS (2)
  1. FINASTERIDE 5 MG (FINASTERIDE) [Suspect]
     Active Substance: FINASTERIDE
     Indication: PRODUCT USED FOR UNKNOWN INDICATION
     Dosage: NR (5 MG)
  2. ALFUZOSIN [Suspect]
     Active Substance: ALFUZOSIN
     Indication: PRODUCT USED FOR UNKNOWN INDICATION
     Dosage: NR (10 MG)?

REACTIONS (5)
  - Fall [None]
  - Illusion [None]
  - Rash [None]
  - Pelvic fracture [None]
  - Hallucination, visual [None]
